FAERS Safety Report 12488347 (Version 2)
Quarter: 2016Q2

REPORT INFORMATION
  Report Type: Spontaneous
  Country: CH (occurrence: CH)
  Receive Date: 20160622
  Receipt Date: 20160622
  Transmission Date: 20160815
  Serious: Yes (Hospitalization, Other)
  Sender: FDA-Public Use
  Company Number: PHHY2016CH083237

PATIENT
  Age: 69 Year
  Sex: Male
  Weight: 70 kg

DRUGS (3)
  1. TASIGNA [Suspect]
     Active Substance: NILOTINIB
     Indication: CHRONIC MYELOID LEUKAEMIA
     Dosage: 300 MG, BID (2XTAGL)
     Route: 048
     Dates: start: 20111101, end: 20160525
  2. ACE INHIBITORS [Concomitant]
     Active Substance: UNSPECIFIED INGREDIENT
     Indication: PRODUCT USED FOR UNKNOWN INDICATION
     Route: 065
  3. HMG COA REDUCTASE INHIBITORS [Concomitant]
     Active Substance: UNSPECIFIED INGREDIENT
     Indication: PRODUCT USED FOR UNKNOWN INDICATION
     Route: 065

REACTIONS (4)
  - Carotid arteriosclerosis [Unknown]
  - Facial paresis [Not Recovered/Not Resolved]
  - Cerebral infarction [Recovered/Resolved with Sequelae]
  - Monoparesis [Not Recovered/Not Resolved]

NARRATIVE: CASE EVENT DATE: 201603
